FAERS Safety Report 21789386 (Version 1)
Quarter: 2022Q4

REPORT INFORMATION
  Report Type: Spontaneous
  Country: CA (occurrence: CA)
  Receive Date: 20221228
  Receipt Date: 20221228
  Transmission Date: 20230113
  Serious: Yes (Other)
  Sender: FDA-Public Use
  Company Number: CA-PFIZER INC-202201368961

PATIENT
  Age: 44 Year
  Sex: Female
  Weight: 75 kg

DRUGS (2)
  1. XELJANZ [Suspect]
     Active Substance: TOFACITINIB CITRATE
     Indication: Colitis ulcerative
     Dosage: 1 DF, 2X/DAY, 10MG TWICE A DAY FOR 8 WEEKS THEN 5MG TWICE A DAY
     Route: 048
     Dates: start: 20221208
  2. MESALAMINE [Concomitant]
     Active Substance: MESALAMINE
     Dosage: 1 DF

REACTIONS (4)
  - Haematochezia [Not Recovered/Not Resolved]
  - Ophthalmic migraine [Recovered/Resolved]
  - Migraine [Recovered/Resolved]
  - Frequent bowel movements [Unknown]

NARRATIVE: CASE EVENT DATE: 20220101
